FAERS Safety Report 17276537 (Version 1)
Quarter: 2020Q1

REPORT INFORMATION
  Report Type: Spontaneous
  Country: US (occurrence: US)
  Receive Date: 20200116
  Receipt Date: 20200116
  Transmission Date: 20200409
  Serious: Yes (Death)
  Sender: FDA-Public Use
  Company Number: US-PFIZER INC-2020017868

PATIENT
  Age: 35 Year
  Sex: Male

DRUGS (7)
  1. TOPIRAMAT [Suspect]
     Active Substance: TOPIRAMATE
     Dosage: UNK (INGESTION)
     Route: 048
  2. METFORMIN [Suspect]
     Active Substance: METFORMIN HYDROCHLORIDE
     Dosage: UNK (INGESTION)
     Route: 048
  3. VALPROIC ACID. [Suspect]
     Active Substance: VALPROIC ACID
     Dosage: UNK (INGESTION)
     Route: 048
  4. CLONIDINE. [Suspect]
     Active Substance: CLONIDINE
     Dosage: UNK (INGESTION)
     Route: 048
  5. LEVOTHYROXINE SODIUM. [Suspect]
     Active Substance: LEVOTHYROXINE SODIUM
     Dosage: UNK (INGESTION)
     Route: 048
  6. PROPANOLOL HCL [Suspect]
     Active Substance: PROPRANOLOL HYDROCHLORIDE
     Dosage: UNK (INGESTION)
     Route: 048
  7. AMPHETAMINE [Suspect]
     Active Substance: AMPHETAMINE
     Dosage: UNK (INGESTION)
     Route: 048

REACTIONS (1)
  - Completed suicide [Fatal]

NARRATIVE: CASE EVENT DATE: 2018
